FAERS Safety Report 20264504 (Version 1)
Quarter: 2021Q4

REPORT INFORMATION
  Report Type: Spontaneous
  Country: US (occurrence: None)
  Receive Date: 20211230
  Receipt Date: 20211230
  Transmission Date: 20220304
  Serious: No
  Sender: FDA-Public Use
  Company Number: None

PATIENT
  Age: 60 Year
  Sex: Female
  Weight: 78.02 kg

DRUGS (1)
  1. ORENCIA [Suspect]
     Active Substance: ABATACEPT
     Indication: Rheumatoid arthritis
     Dosage: INJECT 125 MG SUBCUTANEOUSLY ONCEA  WEEK AS DIRECTED.?
     Route: 058
     Dates: start: 202112

REACTIONS (1)
  - Urinary tract infection [None]
